FAERS Safety Report 7243102-7 (Version None)
Quarter: 2011Q1

REPORT INFORMATION
  Report Type: 
  Country: None (occurrence: None)
  Receive Date: 20110125
  Receipt Date: 20101014
  Transmission Date: 20110831
  Serious: No
  Sender: FDA-Public Use
  Company Number: US-AMGEN-USASP2010000345

PATIENT
  Age: 63 Year
  Sex: Female

DRUGS (14)
  1. DOMPERIDONE [Concomitant]
     Dosage: 1 MG, BID
  2. FISH OIL [Concomitant]
  3. KEPPRA [Concomitant]
     Dosage: 1 MG, BID
  4. ACIPHEX [Concomitant]
     Dosage: 1 MG, BID
  5. CITRACAL + D                       /01438101/ [Concomitant]
  6. MIRALAX [Concomitant]
     Dosage: 1.5 UNK, UNK
  7. PROLIA [Suspect]
     Indication: OSTEOPOROSIS POSTMENOPAUSAL
     Dosage: 60 MG, Q6MO
     Dates: start: 20100823
  8. CENESTIN [Concomitant]
     Dosage: 1 MG, QD
  9. MUCINEX [Concomitant]
  10. ALEVE [Concomitant]
  11. RHINOCORT [Concomitant]
  12. VITAMIN E                          /00110501/ [Concomitant]
  13. PROVERA [Concomitant]
     Dosage: 1 MG, QD
  14. LIPITOR [Concomitant]
     Dosage: 1 MG, QD

REACTIONS (5)
  - TONGUE BITING [None]
  - TONGUE DISORDER [None]
  - FLATULENCE [None]
  - SINUSITIS [None]
  - BOWEL MOVEMENT IRREGULARITY [None]
